FAERS Safety Report 21221053 (Version 1)
Quarter: 2022Q3

REPORT INFORMATION
  Report Type: Report from Study
  Country: CA (occurrence: CA)
  Receive Date: 20220817
  Receipt Date: 20220817
  Transmission Date: 20221026
  Serious: Yes (Other)
  Sender: FDA-Public Use
  Company Number: CA-TAKEDA-2022TUS055935

PATIENT
  Age: 67 Year
  Sex: Male

DRUGS (6)
  1. VEDOLIZUMAB [Suspect]
     Active Substance: VEDOLIZUMAB
     Indication: Colitis ulcerative
     Dosage: 300 MILLIGRAM
     Route: 042
     Dates: start: 20220118
  2. AMLODIPINE MALEATE [Concomitant]
     Active Substance: AMLODIPINE MALEATE
     Indication: Bone density abnormal
     Dosage: 70 MILLIGRAM, 1/WEEK
  3. Salofalk [Concomitant]
     Dosage: 500 MILLIGRAM
     Dates: start: 20191125
  4. MESALAMINE [Concomitant]
     Active Substance: MESALAMINE
     Dosage: 500 MILLIGRAM
     Route: 048
  5. TAMSULOSIN HYDROCHLORIDE [Concomitant]
     Active Substance: TAMSULOSIN HYDROCHLORIDE
     Dosage: 0.4 MILLIGRAM
     Route: 048
  6. ATIVAN [Concomitant]
     Active Substance: LORAZEPAM
     Dosage: 1 MILLIGRAM
     Route: 048

REACTIONS (2)
  - Psoriatic arthropathy [Unknown]
  - Condition aggravated [Unknown]
